FAERS Safety Report 5157784-7 (Version None)
Quarter: 2006Q4

REPORT INFORMATION
  Report Type: 
  Country: None (occurrence: None)
  Receive Date: 20061116
  Receipt Date: 20061106
  Transmission Date: 20070319
  Serious: Yes (Hospitalization, Other)
  Sender: FDA-Public Use
  Company Number: 2006136599

PATIENT
  Age: 54 Year
  Sex: Female

DRUGS (3)
  1. ZOLOFT [Suspect]
     Dosage: 25 MG, ORAL
     Route: 048
     Dates: end: 20061101
  2. RISPERDAL [Concomitant]
  3. HIRNAMIN (LEVOMEPROMAZINE) [Concomitant]

REACTIONS (3)
  - AUTONOMIC NEUROPATHY [None]
  - INSOMNIA [None]
  - TACHYCARDIA [None]
